FAERS Safety Report 5001797-2 (Version None)
Quarter: 2006Q2

REPORT INFORMATION
  Report Type: 
  Country: None (occurrence: None)
  Receive Date: 20060512
  Receipt Date: 20060512
  Transmission Date: 20061013
  Serious: Yes (Hospitalization)
  Sender: FDA-Public Use
  Company Number: None

PATIENT
  Age: 65 Year
  Sex: Male

DRUGS (20)
  1. WARFARIN SODIUM [Suspect]
     Dosage: WARFARIN 2.5MG PO
     Route: 048
     Dates: start: 20050815, end: 20060306
  2. CLOPIDOGREL [Suspect]
     Indication: PERCUTANEOUS CORONARY INTERVENTION
     Dosage: 75MG PO QD
     Route: 048
     Dates: start: 20050701, end: 20060306
  3. CLOPIDOGREL [Suspect]
     Indication: STENT PLACEMENT
     Dosage: 75MG PO QD
     Route: 048
     Dates: start: 20050701, end: 20060306
  4. ALLOPURINOL [Concomitant]
  5. ASPIRIN [Concomitant]
  6. CLOPIDOGREL BISULFATE [Concomitant]
  7. FOSINOPRIL SODIUM [Concomitant]
  8. FUROSEMIDE [Concomitant]
  9. GEMFIBROZIL [Concomitant]
  10. GLIPIZIDE [Concomitant]
  11. MAGNESIUM OXIDE [Concomitant]
  12. METOPROLOL TARTRATE [Concomitant]
  13. NITROGLYCERIN [Concomitant]
  14. NYSTATIN [Concomitant]
  15. OMEPRAZOLE [Concomitant]
  16. PROMETHAZINE [Concomitant]
  17. ROSIGLITAZONE [Concomitant]
  18. ROSUVASTATIN CA [Concomitant]
  19. TRAMADOL HCL [Concomitant]
  20. WARFARIN NA [Concomitant]

REACTIONS (2)
  - EPISTAXIS [None]
  - HAEMORRHAGE [None]
